FAERS Safety Report 7025379-6 (Version None)
Quarter: 2010Q4

REPORT INFORMATION
  Report Type: 
  Country: None (occurrence: None)
  Receive Date: 20101001
  Receipt Date: 20100921
  Transmission Date: 20110411
  Serious: Yes (Other)
  Sender: FDA-Public Use
  Company Number: PHHY2010CA22129

PATIENT
  Sex: Female

DRUGS (1)
  1. ACLASTA [Suspect]
     Indication: OSTEOPOROSIS
     Dosage: 5 MG
     Route: 042
     Dates: start: 20100322

REACTIONS (9)
  - ARTHRALGIA [None]
  - DYSSTASIA [None]
  - MICTURITION DISORDER [None]
  - MUSCULOSKELETAL STIFFNESS [None]
  - PAIN IN EXTREMITY [None]
  - PAIN IN JAW [None]
  - RENAL IMPAIRMENT [None]
  - URINE ANALYSIS ABNORMAL [None]
  - WEIGHT DECREASED [None]
